FAERS Safety Report 10415318 (Version 2)
Quarter: 2014Q3

REPORT INFORMATION
  Report Type: Report from Study
  Country: DE (occurrence: DE)
  Receive Date: 20140828
  Receipt Date: 20140828
  Transmission Date: 20150326
  Serious: Yes (Other)
  Sender: FDA-Public Use
  Company Number: PHHY2013DE089447

PATIENT
  Sex: Female
  Weight: 67 kg

DRUGS (5)
  1. BONDRONAT [Concomitant]
     Active Substance: IBANDRONIC ACID
     Dosage: 6 MG, UNK
     Dates: start: 20120530
  2. EXEMESTANE. [Suspect]
     Active Substance: EXEMESTANE
     Dosage: 25 MG, PER DAY
     Route: 048
     Dates: start: 20130412, end: 20130604
  3. AFINITOR [Suspect]
     Active Substance: EVEROLIMUS
     Indication: BREAST CANCER
     Dosage: 10 MG, PER DAY
     Dates: start: 20130412, end: 20130604
  4. AFINITOR [Suspect]
     Active Substance: EVEROLIMUS
     Dosage: 10 MG, DAILY
     Route: 048
     Dates: start: 20130606
  5. EXEMESTANE. [Suspect]
     Active Substance: EXEMESTANE
     Dosage: 25 MG, PER DAY
     Route: 048
     Dates: start: 20130606

REACTIONS (6)
  - Nausea [Recovered/Resolved]
  - Dizziness [Recovering/Resolving]
  - Peripheral sensory neuropathy [Not Recovered/Not Resolved]
  - Diarrhoea [Unknown]
  - Sleep disorder [Recovered/Resolved]
  - Rash [Not Recovered/Not Resolved]

NARRATIVE: CASE EVENT DATE: 20130619
